FAERS Safety Report 11150890 (Version 1)
Quarter: 2015Q2

REPORT INFORMATION
  Report Type: Spontaneous
  Country: GB (occurrence: GB)
  Receive Date: 20150601
  Receipt Date: 20150601
  Transmission Date: 20150821
  Serious: Yes (Hospitalization, Other)
  Sender: FDA-Public Use
  Company Number: GB-JNJFOC-20150414654

PATIENT
  Sex: Male

DRUGS (6)
  1. AMLODIPINE [Concomitant]
     Active Substance: AMLODIPINE BESYLATE
     Indication: BLOOD PRESSURE
     Route: 065
     Dates: start: 20081231
  2. INVOKANA [Suspect]
     Active Substance: CANAGLIFLOZIN
     Indication: DIABETES MELLITUS
     Route: 048
     Dates: start: 20150311, end: 20150327
  3. ATENOLOL. [Concomitant]
     Active Substance: ATENOLOL
     Indication: BLOOD PRESSURE
     Route: 065
     Dates: start: 20050105
  4. METFORMIN [Suspect]
     Active Substance: METFORMIN HYDROCHLORIDE
     Indication: DIABETES MELLITUS
     Route: 065
     Dates: start: 20140610
  5. SIMVASTATIN. [Concomitant]
     Active Substance: SIMVASTATIN
     Indication: DIABETES MELLITUS
     Route: 065
     Dates: start: 20121024
  6. PERINDOPRIL [Concomitant]
     Active Substance: PERINDOPRIL
     Indication: BLOOD PRESSURE
     Route: 065
     Dates: start: 20040907

REACTIONS (2)
  - Pyrexia [Recovering/Resolving]
  - Abdominal pain upper [Recovering/Resolving]
